FAERS Safety Report 9030424 (Version 8)
Quarter: 2013Q2

REPORT INFORMATION
  Report Type: Report from Study
  Country: DE (occurrence: DE)
  Receive Date: 20130122
  Receipt Date: 20130402
  Transmission Date: 20140414
  Serious: Yes (Hospitalization, Other)
  Sender: FDA-Public Use
  Company Number: DE-ROCHE-1161995

PATIENT
  Age: 64 Year
  Sex: Female
  Weight: 81.7 kg

DRUGS (18)
  1. VEMURAFENIB [Suspect]
     Indication: MALIGNANT MELANOMA
     Route: 048
     Dates: start: 20111229, end: 20120221
  2. VEMURAFENIB [Suspect]
     Route: 048
     Dates: start: 20120222, end: 20120516
  3. VEMURAFENIB [Suspect]
     Route: 048
     Dates: start: 20121119
  4. VEMURAFENIB [Suspect]
     Route: 048
     Dates: start: 20120517, end: 20120606
  5. VEMURAFENIB [Suspect]
     Route: 048
     Dates: start: 20120606, end: 20120622
  6. VEMURAFENIB [Suspect]
     Route: 048
     Dates: start: 20120622, end: 20120627
  7. VEMURAFENIB [Suspect]
     Route: 048
     Dates: start: 20120627, end: 20120710
  8. VEMURAFENIB [Suspect]
     Route: 048
     Dates: end: 20121010
  9. ASS [Concomitant]
     Route: 065
     Dates: start: 1990
  10. AGGRENOX [Concomitant]
     Dosage: 400/50 MG
     Route: 065
     Dates: start: 2010
  11. OMEPRAZOLE [Concomitant]
     Route: 065
     Dates: start: 1996
  12. SIMVASTATIN [Concomitant]
     Route: 065
     Dates: start: 1991
  13. DICLOFENAC [Concomitant]
     Route: 065
     Dates: start: 2009
  14. DICLOFENAC [Concomitant]
     Route: 065
     Dates: start: 2009
  15. TILIDIN [Concomitant]
     Route: 065
     Dates: start: 2011
  16. TILIDIN [Concomitant]
     Route: 065
     Dates: start: 2009
  17. LOPEDIUM [Concomitant]
     Route: 065
     Dates: start: 201108
  18. LOPEDIUM [Concomitant]
     Route: 065
     Dates: start: 2009

REACTIONS (3)
  - Metastases to skin [Recovered/Resolved with Sequelae]
  - Pain in extremity [Not Recovered/Not Resolved]
  - Metastases to skin [Recovering/Resolving]
